FAERS Safety Report 25197148 (Version 2)
Quarter: 2025Q2

REPORT INFORMATION
  Report Type: Spontaneous
  Country: FR (occurrence: FR)
  Receive Date: 20250415
  Receipt Date: 20250425
  Transmission Date: 20250717
  Serious: Yes (Other)
  Sender: TEVA
  Company Number: FR-TEVA-VS-3320127

PATIENT
  Age: 23 Year
  Sex: Female

DRUGS (5)
  1. LEVOFLOXACIN [Suspect]
     Active Substance: LEVOFLOXACIN
     Indication: Musculoskeletal disorder
     Route: 048
  2. RIFAMPIN [Suspect]
     Active Substance: RIFAMPIN
     Indication: Musculoskeletal disorder
     Route: 048
  3. ETHAMBUTOL [Suspect]
     Active Substance: ETHAMBUTOL HYDROCHLORIDE
     Indication: Musculoskeletal disorder
     Route: 048
  4. PYRAZINAMIDE [Suspect]
     Active Substance: PYRAZINAMIDE
     Indication: Musculoskeletal disorder
     Route: 048
  5. ISONIAZID [Suspect]
     Active Substance: ISONIAZID
     Indication: Musculoskeletal disorder
     Route: 048

REACTIONS (1)
  - Drug-induced liver injury [Unknown]
